FAERS Safety Report 19144907 (Version 2)
Quarter: 2021Q3

REPORT INFORMATION
  Report Type: Spontaneous
  Country: JP (occurrence: JP)
  Receive Date: 20210416
  Receipt Date: 20210709
  Transmission Date: 20211014
  Serious: Yes (Hospitalization)
  Sender: FDA-Public Use
  Company Number: JP-MYLANLABS-2021M1019119

PATIENT
  Age: 87 Year
  Sex: Female
  Weight: 41 kg

DRUGS (7)
  1. CILOSTAZOL. [Suspect]
     Active Substance: CILOSTAZOL
     Indication: LACUNAR INFARCTION
     Dosage: 200 MILLIGRAM
     Route: 065
  2. LACOSAMIDE. [Concomitant]
     Active Substance: LACOSAMIDE
     Indication: STATUS EPILEPTICUS
     Dosage: 100 MILLIGRAM
     Route: 065
  3. THEOPHYLLINE [Interacting]
     Active Substance: THEOPHYLLINE ANHYDROUS
     Indication: ASTHMA
     Dosage: 400 MILLIGRAM
     Route: 048
  4. EDARAVONE [Concomitant]
     Active Substance: EDARAVONE
     Indication: LACUNAR INFARCTION
     Route: 065
  5. LACOSAMIDE. [Concomitant]
     Active Substance: LACOSAMIDE
     Dosage: 200 MILLIGRAM
     Route: 065
  6. CLOPIDOGREL SULFATE [Concomitant]
     Active Substance: CLOPIDOGREL BISULFATE
     Indication: CEREBRAL INFARCTION
     Route: 065
  7. MONTELUKAST SODIUM. [Concomitant]
     Active Substance: MONTELUKAST SODIUM
     Indication: STATUS EPILEPTICUS
     Route: 065

REACTIONS (3)
  - Nervous system disorder [Recovered/Resolved]
  - Drug interaction [Recovered/Resolved]
  - Status epilepticus [Recovered/Resolved]
